FAERS Safety Report 7148325-3 (Version None)
Quarter: 2010Q4

REPORT INFORMATION
  Report Type: 
  Country: None (occurrence: None)
  Receive Date: 20101209
  Receipt Date: 20101206
  Transmission Date: 20110411
  Serious: Yes (Life-Threatening, Hospitalization)
  Sender: FDA-Public Use
  Company Number: PHFR2010GB05768

PATIENT
  Sex: Male

DRUGS (17)
  1. ENTACAPONE [Suspect]
     Indication: PARKINSON'S DISEASE
     Dosage: 200 MG, 6QD
     Route: 048
  2. AMITRIPTYLINE [Concomitant]
     Indication: INSOMNIA
     Dosage: 30 MG, QD
     Route: 048
  3. ACETYLSALICYLIC ACID [Concomitant]
     Indication: ACUTE CORONARY SYNDROME
     Dosage: 75 MG, QD
     Route: 048
  4. CLOPIDOGREL [Concomitant]
     Indication: ACUTE CORONARY SYNDROME
     Dosage: 75 MG, QD
     Route: 048
  5. CO-BENELDOPA [Concomitant]
     Indication: PARKINSON'S DISEASE
     Dosage: UNK
  6. CO-CARELDOPA [Concomitant]
     Indication: PARKINSON'S DISEASE
     Dosage: UNK
     Route: 048
  7. CO-CARELDOPA [Concomitant]
     Dosage: UNK
     Route: 048
  8. DOCOSAHEXANOIC ACID [Concomitant]
     Dosage: 380 MG, QD
  9. DOMPERIDONE [Concomitant]
     Dosage: 20 MG, TID
  10. EICOSAPENTAENOIC ACID [Concomitant]
     Dosage: 460 MG, QD
     Route: 048
  11. ESOMEPRAZOLE [Concomitant]
     Dosage: 40 MG, QD
     Route: 048
  12. GLYCERYL TRINITRATE [Concomitant]
     Indication: ANGINA PECTORIS
     Dosage: 400 UG, PRN
     Route: 060
  13. ISOSORBIDE MONONITRATE [Concomitant]
     Indication: ANGINA PECTORIS
     Dosage: 20 MG, TID
     Route: 048
  14. RAMIPRIL [Concomitant]
     Dosage: 2.5 MG, QD
  15. RANITIDINE [Concomitant]
     Dosage: 150 MG, QD
     Route: 048
  16. SIMVASTATIN [Concomitant]
     Indication: ACUTE CORONARY SYNDROME
     Dosage: 40 MG, QD
     Route: 048
  17. VERAPAMIL [Concomitant]
     Route: 048

REACTIONS (2)
  - ANGIOPLASTY [None]
  - MYOCARDIAL INFARCTION [None]
